FAERS Safety Report 4907061-1 (Version None)
Quarter: 2006Q1

REPORT INFORMATION
  Report Type: 
  Country: None (occurrence: None)
  Receive Date: 20060206
  Receipt Date: 20060120
  Transmission Date: 20060701
  Serious: Yes (Other)
  Sender: FDA-Public Use
  Company Number: ADE #2

PATIENT
  Age: 64 Year
  Sex: Female
  Weight: 49.8957 kg

DRUGS (5)
  1. MERETEK UBT KIT (W/ PRANACTIN) [Suspect]
     Indication: HELICOBACTER INFECTION
     Dosage: ONE POUCH PER TEST
     Dates: start: 20060119
  2. ACIPEX [Concomitant]
  3. LIPITOR [Concomitant]
  4. MULTIVITAMIN [Concomitant]
  5. ASPIRIN [Concomitant]

REACTIONS (1)
  - NAUSEA [None]
